FAERS Safety Report 7235010-2 (Version None)
Quarter: 2011Q1

REPORT INFORMATION
  Report Type: 
  Country: None (occurrence: None)
  Receive Date: 20110114
  Receipt Date: 20110114
  Transmission Date: 20110831
  Serious: Yes (Life-Threatening, Hospitalization)
  Sender: FDA-Public Use
  Company Number: None

PATIENT
  Age: 27 Year
  Sex: Female
  Weight: 91.6266 kg

DRUGS (1)
  1. ADVIL CONGESTION RELIEF [Suspect]
     Indication: SINUS CONGESTION
     Dosage: 1 TABLET ONCE PO
     Route: 048
     Dates: start: 20110111, end: 20110111

REACTIONS (5)
  - URTICARIA [None]
  - DYSPNOEA [None]
  - SWELLING FACE [None]
  - ERYTHEMA [None]
  - SWOLLEN TONGUE [None]
